FAERS Safety Report 12282118 (Version 1)
Quarter: 2016Q2

REPORT INFORMATION
  Report Type: Spontaneous
  Country: US (occurrence: US)
  Receive Date: 20160419
  Receipt Date: 20160419
  Transmission Date: 20160815
  Serious: No
  Sender: FDA-Public Use
  Company Number: US-PFIZER INC-2016056901

PATIENT
  Age: 75 Year
  Sex: Female
  Weight: 75 kg

DRUGS (6)
  1. PREDNISONE. [Concomitant]
     Active Substance: PREDNISONE
     Indication: ARTHRITIS
     Dosage: 5MG IN THE MORNING 2.5MG AT NIGHT
  2. AMLODIPINE [Concomitant]
     Active Substance: AMLODIPINE BESYLATE
     Indication: HYPERTENSION
     Dosage: 10 MG, 1X/DAY (ONE IN THE MORNING)
  3. XELJANZ [Suspect]
     Active Substance: TOFACITINIB CITRATE
     Indication: PALINDROMIC RHEUMATISM
     Dosage: UNK UNK, 2X/DAY (ONE IN THE MORNING AT ABOUT 7 AND EVENING AT 7)
     Route: 048
     Dates: start: 201512, end: 20160105
  4. FENTANYL. [Concomitant]
     Active Substance: FENTANYL
     Indication: PAIN
     Dosage: 25 MG, UNK (25MG TO 72 HOURS)
     Dates: start: 20151226
  5. METHOTREXATE [Concomitant]
     Active Substance: METHOTREXATE
     Indication: ARTHRITIS
     Dosage: 2.5MG TABLET, 5 TABLETS IN THE MORNING AND 5 TABLETS AT NIGHT ONCE A WEEK
  6. XELJANZ [Suspect]
     Active Substance: TOFACITINIB CITRATE
     Indication: RHEUMATOID ARTHRITIS
     Dosage: UNK UNK, 2X/DAY (ONE IN THE MORNING AT ABOUT 7 AND EVENING AT 7)
     Route: 048
     Dates: start: 20160118

REACTIONS (1)
  - Urinary tract infection [Unknown]
